FAERS Safety Report 23318903 (Version 1)
Quarter: 2023Q4

REPORT INFORMATION
  Report Type: Spontaneous
  Country: CA (occurrence: CA)
  Receive Date: 20231220
  Receipt Date: 20231220
  Transmission Date: 20240110
  Serious: Yes (Other)
  Sender: FDA-Public Use
  Company Number: CA-ORGANON-O2312CAN001462

PATIENT
  Age: 77 Year
  Sex: Male

DRUGS (2)
  1. EZETIMIBE [Suspect]
     Active Substance: EZETIMIBE
     Indication: Arteriosclerosis
     Dosage: UNK
     Route: 058
  2. ATORVASTATIN CALCIUM [Suspect]
     Active Substance: ATORVASTATIN CALCIUM
     Indication: Arteriosclerosis
     Dosage: 10 MILLIGRAM (DOSAGE FORM: NOT SPECIFIED)
     Route: 058

REACTIONS (6)
  - Blood glucose abnormal [Unknown]
  - Blood potassium abnormal [Unknown]
  - Glycosylated haemoglobin increased [Unknown]
  - Mean cell haemoglobin concentration abnormal [Unknown]
  - Red blood cell count abnormal [Unknown]
  - Serum ferritin abnormal [Unknown]
